FAERS Safety Report 13846790 (Version 1)
Quarter: 2017Q3

REPORT INFORMATION
  Report Type: Spontaneous
  Country: US (occurrence: US)
  Receive Date: 20170808
  Receipt Date: 20170808
  Transmission Date: 20171127
  Serious: No
  Sender: FDA-Public Use
  Company Number: US-SA-2017SA100279

PATIENT
  Age: 78 Year
  Sex: Female

DRUGS (3)
  1. XYZAL ALLERGY 24HR [Suspect]
     Active Substance: LEVOCETIRIZINE DIHYDROCHLORIDE
     Indication: MULTIPLE ALLERGIES
     Dosage: START DATE A MONTH AGO, FREQUENCY ONCE DAILY IN THE PM
     Route: 048
  2. XYZAL ALLERGY 24HR [Suspect]
     Active Substance: LEVOCETIRIZINE DIHYDROCHLORIDE
     Indication: RHINORRHOEA
     Dosage: START DATE A MONTH AGO, FREQUENCY ONCE DAILY IN THE PM
     Route: 048
  3. XYZAL ALLERGY 24HR [Suspect]
     Active Substance: LEVOCETIRIZINE DIHYDROCHLORIDE
     Indication: LACRIMATION INCREASED
     Dosage: START DATE A MONTH AGO, FREQUENCY ONCE DAILY IN THE PM
     Route: 048

REACTIONS (1)
  - Drug ineffective [Unknown]
